FAERS Safety Report 5487290-1 (Version None)
Quarter: 2007Q4

REPORT INFORMATION
  Report Type: 
  Country: None (occurrence: None)
  Receive Date: 20071015
  Receipt Date: 20070928
  Transmission Date: 20080405
  Serious: Yes (Other)
  Sender: FDA-Public Use
  Company Number: 07-388

PATIENT
  Age: 64 Year
  Sex: Female
  Weight: 77.1115 kg

DRUGS (12)
  1. ALEVE [Suspect]
     Indication: HEADACHE
     Dosage: 220 MG, DAILY, ORAL
     Route: 048
     Dates: start: 20070801
  2. WARFARIN SODIUM [Suspect]
  3. ISOSORBIDE DINITRATE [Concomitant]
  4. VYTORIN [Concomitant]
  5. POTASSIUM CHLORIDE [Concomitant]
  6. NITROQUICK [Concomitant]
  7. CYMBALTA [Concomitant]
  8. GABAPENTIN [Concomitant]
  9. FEXOFENADINE [Concomitant]
  10. FUROSEMIDE [Concomitant]
  11. BISOPROLOL FUMARATE [Concomitant]
  12. FUMARATE [Concomitant]

REACTIONS (4)
  - BREAST DISCOLOURATION [None]
  - BREAST MASS [None]
  - COAGULOPATHY [None]
  - HEADACHE [None]
